FAERS Safety Report 8941127 (Version 1)
Quarter: 2012Q4

REPORT INFORMATION
  Report Type: 
  Country: US (occurrence: US)
  Receive Date: 20121203
  Receipt Date: 20121203
  Transmission Date: 20130627
  Serious: Yes (Other)
  Sender: FDA-Public Use
  Company Number: US-ASTRAZENECA-2012SE89270

PATIENT
  Age: 45 Year
  Sex: Female

DRUGS (7)
  1. OMEPRAZOLE [Suspect]
     Indication: GASTROOESOPHAGEAL REFLUX DISEASE
     Route: 048
     Dates: start: 200908, end: 20100806
  2. CLOZAPINE [Concomitant]
  3. RADIATION THERAPY [Concomitant]
  4. LEVOTHYROXINE [Concomitant]
  5. OLANZAPINE [Concomitant]
  6. OXCARBAZEPINE [Concomitant]
  7. SERTRALINE [Concomitant]

REACTIONS (2)
  - Leukopenia [Recovered/Resolved]
  - Granulocytopenia [Recovered/Resolved]
